FAERS Safety Report 13329789 (Version 2)
Quarter: 2017Q2

REPORT INFORMATION
  Report Type: Spontaneous
  Country: TR (occurrence: TR)
  Receive Date: 20170313
  Receipt Date: 20170424
  Transmission Date: 20170830
  Serious: Yes (Other)
  Sender: FDA-Public Use
  Company Number: TR-PFIZER INC-2017104896

PATIENT
  Age: 50 Year
  Sex: Female

DRUGS (7)
  1. LATANOPROST. [Suspect]
     Active Substance: LATANOPROST
     Indication: ANGLE CLOSURE GLAUCOMA
     Dosage: UNK
     Route: 047
  2. TIMOPTIC [Concomitant]
     Active Substance: TIMOLOL MALEATE
     Indication: ANGLE CLOSURE GLAUCOMA
     Dosage: UNK, 2X/DAY
  3. MAXIDEX [Concomitant]
     Active Substance: DEXAMETHASONE
     Indication: INFLAMMATION
     Dosage: UNK UNK, 4X/DAY
  4. TRUSOPT [Concomitant]
     Active Substance: DORZOLAMIDE HYDROCHLORIDE
     Dosage: UNK UNK, 2X/DAY
  5. MANNITOL. [Concomitant]
     Active Substance: MANNITOL
     Indication: ANGLE CLOSURE GLAUCOMA
     Dosage: 250 CC
     Route: 042
  6. DIAZOMID [Concomitant]
     Indication: ANGLE CLOSURE GLAUCOMA
     Dosage: 1000 MG, 4X/DAY
  7. PILOMIN /00043502/ [Concomitant]
     Dosage: UNK UNK, 4X/DAY

REACTIONS (3)
  - Choroidal effusion [Recovered/Resolved]
  - Flat anterior chamber of eye [Recovered/Resolved]
  - Choroidal detachment [Recovered/Resolved]
